FAERS Safety Report 6655682-0 (Version None)
Quarter: 2010Q1

REPORT INFORMATION
  Report Type: 
  Country: None (occurrence: None)
  Receive Date: 20100317
  Receipt Date: 20100126
  Transmission Date: 20100710
  Serious: No
  Sender: FDA-Public Use
  Company Number: DSA_42486_2010

PATIENT
  Sex: Female

DRUGS (3)
  1. XENAZINE [Suspect]
     Indication: CHOREA
     Dosage: 12.5 MG QD ORAL, 12.5 MG BID ORAL, 12.5 MG TID ORAL
     Route: 048
     Dates: start: 20091223, end: 20091229
  2. XENAZINE [Suspect]
     Indication: CHOREA
     Dosage: 12.5 MG QD ORAL, 12.5 MG BID ORAL, 12.5 MG TID ORAL
     Route: 048
     Dates: start: 20100106, end: 20100101
  3. XENAZINE [Suspect]
     Indication: CHOREA
     Dosage: 12.5 MG QD ORAL, 12.5 MG BID ORAL, 12.5 MG TID ORAL
     Route: 048
     Dates: start: 20091230, end: 20100105

REACTIONS (1)
  - MOVEMENT DISORDER [None]
